FAERS Safety Report 5438397-6 (Version None)
Quarter: 2007Q3

REPORT INFORMATION
  Report Type: 
  Country: None (occurrence: None)
  Receive Date: 20070831
  Receipt Date: 20070821
  Transmission Date: 20080115
  Serious: No
  Sender: FDA-Public Use
  Company Number: A0672740A

PATIENT
  Age: 29 Year

DRUGS (1)
  1. ALLI [Suspect]
     Indication: DRUG USE FOR UNKNOWN INDICATION
     Dates: start: 20070618

REACTIONS (2)
  - CONSTIPATION [None]
  - DEPRESSED MOOD [None]
